FAERS Safety Report 6812393-6 (Version None)
Quarter: 2010Q3

REPORT INFORMATION
  Report Type: 
  Country: None (occurrence: None)
  Receive Date: 20100701
  Receipt Date: 20100623
  Transmission Date: 20110219
  Serious: Yes (Other)
  Sender: FDA-Public Use
  Company Number: AU-JNJFOC-20100603281

PATIENT
  Sex: Female

DRUGS (2)
  1. REMICADE [Suspect]
     Indication: PRODUCT USED FOR UNKNOWN INDICATION
     Route: 042
  2. VITAMIN B-12 [Concomitant]
     Route: 050

REACTIONS (1)
  - INTRAOCULAR PRESSURE INCREASED [None]
